FAERS Safety Report 7704082-0 (Version None)
Quarter: 2011Q3

REPORT INFORMATION
  Report Type: 
  Country: None (occurrence: None)
  Receive Date: 20110729
  Receipt Date: 20100809
  Transmission Date: 20111222
  Serious: Yes (Other)
  Sender: FDA-Public Use
  Company Number: US-JNJFOC-20100607582

PATIENT
  Age: 60 Year
  Sex: Male

DRUGS (1)
  1. IMODIUM [Suspect]
     Indication: GASTROINTESTINAL DISORDER
     Dosage: 36-40 MG (18- 20) PILLS EVERYDAY

REACTIONS (1)
  - OVERDOSE [None]
